FAERS Safety Report 9449733 (Version 2)
Quarter: 2013Q3

REPORT INFORMATION
  Report Type: Spontaneous
  Country: CH (occurrence: CH)
  Receive Date: 20130809
  Receipt Date: 20130903
  Transmission Date: 20140515
  Serious: Yes (Other)
  Sender: FDA-Public Use
  Company Number: CH-JNJFOC-20130801085

PATIENT
  Age: 60 Year
  Sex: Male

DRUGS (3)
  1. ZALDIAR [Suspect]
     Indication: BACK PAIN
     Route: 048
     Dates: start: 201306, end: 20130612
  2. ZALDIAR [Suspect]
     Indication: BACK PAIN
     Dosage: 2 DOSES 4 /DAY
     Route: 048
     Dates: start: 201306, end: 20130612
  3. INEGY [Concomitant]
     Indication: PRODUCT USED FOR UNKNOWN INDICATION
     Route: 048
     Dates: start: 20121115, end: 20130712

REACTIONS (4)
  - Rash [Recovering/Resolving]
  - Urinary tract obstruction [Recovering/Resolving]
  - Cystitis noninfective [Recovering/Resolving]
  - Micturition disorder [Recovering/Resolving]
